FAERS Safety Report 5968016-1 (Version None)
Quarter: 2008Q4

REPORT INFORMATION
  Report Type: 
  Country: None (occurrence: None)
  Receive Date: 20081121
  Receipt Date: 20081106
  Transmission Date: 20090506
  Serious: Yes (Other)
  Sender: FDA-Public Use
  Company Number: 8039557

PATIENT
  Age: 57 Year
  Sex: Female

DRUGS (6)
  1. KEPPRA [Suspect]
     Dosage: 500 MG 2/D PO
     Route: 048
     Dates: start: 20071108
  2. CITRUS FRUITS [Suspect]
     Dosage: PO
     Route: 048
  3. GRAPEFRUIT [Suspect]
     Dosage: PO
     Route: 048
  4. AMLODIPINE [Concomitant]
  5. CANDESARTAN [Concomitant]
  6. RANITIDINE [Concomitant]

REACTIONS (3)
  - CONDITION AGGRAVATED [None]
  - CONVULSION [None]
  - FOOD INTERACTION [None]
